FAERS Safety Report 14547869 (Version 3)
Quarter: 2018Q2

REPORT INFORMATION
  Report Type: Spontaneous
  Country: FR (occurrence: FR)
  Receive Date: 20180219
  Receipt Date: 20180517
  Transmission Date: 20180711
  Serious: Yes (Disabling)
  Sender: FDA-Public Use
  Company Number: FR-TEVA-2018-FR-848120

PATIENT
  Age: 34 Year
  Sex: Female

DRUGS (1)
  1. COPAXONE [Suspect]
     Active Substance: GLATIRAMER ACETATE
     Route: 058
     Dates: start: 20180103

REACTIONS (14)
  - Back pain [Unknown]
  - Anxiety [Unknown]
  - Tremor [Unknown]
  - Injection site induration [Not Recovered/Not Resolved]
  - Overwork [Unknown]
  - Influenza like illness [Not Recovered/Not Resolved]
  - Product dropper issue [Unknown]
  - Blood pressure decreased [Not Recovered/Not Resolved]
  - Fatigue [Unknown]
  - Injection site mass [Not Recovered/Not Resolved]
  - Injection site haematoma [Unknown]
  - Pain [Not Recovered/Not Resolved]
  - Feeling cold [Unknown]
  - Injection site pain [Not Recovered/Not Resolved]

NARRATIVE: CASE EVENT DATE: 2018
